FAERS Safety Report 20103531 (Version 1)
Quarter: 2021Q4

REPORT INFORMATION
  Report Type: Spontaneous
  Country: US (occurrence: None)
  Receive Date: 20211123
  Receipt Date: 20211123
  Transmission Date: 20220303
  Serious: No
  Sender: FDA-Public Use
  Company Number: None

PATIENT
  Age: 57 Year
  Sex: Female
  Weight: 80.55 kg

DRUGS (1)
  1. VYEPTI [Suspect]
     Active Substance: EPTINEZUMAB-JJMR
     Indication: Migraine
     Route: 042

REACTIONS (6)
  - Oropharyngeal discomfort [None]
  - Flushing [None]
  - Infusion related reaction [None]
  - Rash [None]
  - Lip swelling [None]
  - Somnolence [None]

NARRATIVE: CASE EVENT DATE: 20211123
